FAERS Safety Report 8254376-8 (Version None)
Quarter: 2012Q2

REPORT INFORMATION
  Report Type: 
  Country: None (occurrence: None)
  Receive Date: 20120402
  Receipt Date: 20120323
  Transmission Date: 20120825
  Serious: No
  Sender: FDA-Public Use
  Company Number: US-AMGEN-USASP2012018990

PATIENT
  Age: 52 Year
  Sex: Female

DRUGS (2)
  1. ENBREL [Suspect]
     Indication: RHEUMATOID ARTHRITIS
     Dosage: 50 MG, QWK
     Dates: start: 20091201
  2. HUMIRA [Concomitant]
     Dosage: UNK

REACTIONS (7)
  - PAIN [None]
  - RHEUMATOID ARTHRITIS [None]
  - URTICARIA [None]
  - FATIGUE [None]
  - INFLUENZA [None]
  - COUGH [None]
  - RESPIRATORY TRACT INFECTION [None]
